FAERS Safety Report 4835655-0 (Version None)
Quarter: 2005Q4

REPORT INFORMATION
  Report Type: 
  Country: None (occurrence: None)
  Receive Date: 20051121
  Receipt Date: 20051107
  Transmission Date: 20060501
  Serious: Yes (Hospitalization)
  Sender: FDA-Public Use
  Company Number: B0398726A

PATIENT
  Age: 49 Year
  Sex: Male

DRUGS (2)
  1. VALTREX [Suspect]
     Indication: HERPES ZOSTER
     Dosage: 2000 MG / PER DAY / ORAL
     Route: 048
     Dates: start: 20020905
  2. ACYCLOVIR [Concomitant]

REACTIONS (10)
  - C-REACTIVE PROTEIN INCREASED [None]
  - DEPRESSED LEVEL OF CONSCIOUSNESS [None]
  - DIALYSIS [None]
  - DIFFICULTY IN WALKING [None]
  - DYSPHORIA [None]
  - ENCEPHALITIS [None]
  - HEADACHE [None]
  - NERVOUS SYSTEM DISORDER [None]
  - NEUROPATHY [None]
  - NUCHAL RIGIDITY [None]
